FAERS Safety Report 8271452-4 (Version None)
Quarter: 2012Q2

REPORT INFORMATION
  Report Type: 
  Country: None (occurrence: None)
  Receive Date: 20120410
  Receipt Date: 20120402
  Transmission Date: 20120825
  Serious: Yes (Hospitalization)
  Sender: FDA-Public Use
  Company Number: US-SANOFI-AVENTIS-2012SA021852

PATIENT
  Age: 63 Year
  Sex: Male
  Weight: 62.82 kg

DRUGS (2)
  1. BLINDED THERAPY [Suspect]
     Route: 048
     Dates: start: 20120104
  2. DOCETAXEL [Suspect]
     Route: 042
     Dates: start: 20120104

REACTIONS (1)
  - MOUTH HAEMORRHAGE [None]
